FAERS Safety Report 24623671 (Version 5)
Quarter: 2025Q1

REPORT INFORMATION
  Report Type: Spontaneous
  Country: IT (occurrence: IT)
  Receive Date: 20241115
  Receipt Date: 20250217
  Transmission Date: 20250409
  Serious: Yes (Hospitalization)
  Sender: ROCHE
  Company Number: IT-002147023-NVSC2024IT219092

PATIENT
  Age: 25 Day
  Sex: Male
  Weight: 0.84 kg

DRUGS (17)
  1. VALGANCICLOVIR [Suspect]
     Active Substance: VALGANCICLOVIR
     Indication: Cytomegalovirus infection
     Dosage: 16 MG/KG, Q12H
     Route: 065
  2. VALGANCICLOVIR [Suspect]
     Active Substance: VALGANCICLOVIR
     Dosage: 8 MG/KG, Q12H
     Route: 065
  3. VALGANCICLOVIR [Suspect]
     Active Substance: VALGANCICLOVIR
     Dosage: 8 MG/KG, Q12H
     Route: 065
  4. VALGANCICLOVIR [Suspect]
     Active Substance: VALGANCICLOVIR
     Dosage: 8 MG/KG, Q12H
     Route: 065
  5. RANIBIZUMAB [Suspect]
     Active Substance: RANIBIZUMAB
     Indication: Retinopathy of prematurity
     Route: 050
  6. PROPOFOL [Concomitant]
     Active Substance: PROPOFOL
     Indication: Anaesthesia
     Route: 065
  7. KETAMINE HYDROCHLORIDE [Concomitant]
     Active Substance: KETAMINE HYDROCHLORIDE
     Indication: Anaesthesia
     Route: 065
  8. AMPICILLIN POTASSIUM [Concomitant]
     Active Substance: AMPICILLIN POTASSIUM
     Indication: Antibiotic prophylaxis
  9. FLUCONAZOLE [Concomitant]
     Active Substance: FLUCONAZOLE
     Indication: Antibiotic prophylaxis
  10. GENTAMICIN [Concomitant]
     Active Substance: GENTAMICIN
     Indication: Antibiotic prophylaxis
  11. AMIKACIN [Concomitant]
     Active Substance: AMIKACIN
     Indication: Pneumonia
  12. AMIKACIN [Concomitant]
     Active Substance: AMIKACIN
     Indication: Antibiotic prophylaxis
  13. VANCOMYCIN [Concomitant]
     Active Substance: VANCOMYCIN
     Indication: Pneumonia
  14. CEFTAROLINE [Concomitant]
     Active Substance: CEFTAROLINE
     Indication: Pneumonia
  15. TROPICAMIDE [Concomitant]
     Active Substance: TROPICAMIDE
     Indication: Pneumonia
  16. TOBRAMYCIN AND DEXAMETHASONE [Concomitant]
     Active Substance: DEXAMETHASONE\TOBRAMYCIN
     Indication: Product used for unknown indication
  17. OFLOXACIN [Concomitant]
     Active Substance: OFLOXACIN
     Indication: Product used for unknown indication

REACTIONS (7)
  - Necrotising colitis [Recovering/Resolving]
  - Haematochezia [Recovering/Resolving]
  - Abdominal distension [Recovering/Resolving]
  - Respiratory distress [Recovering/Resolving]
  - Bradycardia [Recovering/Resolving]
  - Neutropenia [Recovering/Resolving]
  - Off label use [Unknown]
